FAERS Safety Report 24978996 (Version 2)
Quarter: 2025Q3

REPORT INFORMATION
  Report Type: Spontaneous
  Country: CN (occurrence: CN)
  Receive Date: 20250218
  Receipt Date: 20250816
  Transmission Date: 20251021
  Serious: No
  Sender: ALEXION PHARMACEUTICALS
  Company Number: CN-AstraZeneca-2019SE15839

PATIENT
  Age: 48 Year
  Sex: Female
  Weight: 60 kg

DRUGS (2)
  1. ESOMEPRAZOLE MAGNESIUM [Suspect]
     Active Substance: ESOMEPRAZOLE MAGNESIUM
     Indication: Gastritis
     Dosage: 20 MILLIGRAM, QD
     Dates: start: 20181113, end: 20181117
  2. ESOMEPRAZOLE MAGNESIUM [Suspect]
     Active Substance: ESOMEPRAZOLE MAGNESIUM
     Indication: Therapeutic procedure

REACTIONS (3)
  - Tinnitus [Recovered/Resolved]
  - Nausea [Recovered/Resolved]
  - Dizziness [Recovered/Resolved]

NARRATIVE: CASE EVENT DATE: 20181117
